FAERS Safety Report 9523946 (Version 1)
Quarter: 2013Q1

REPORT INFORMATION
  Report Type: Spontaneous
  Country: US (occurrence: None)
  Receive Date: 20130313
  Receipt Date: 20130313
  Transmission Date: 20140127
  Serious: No
  Sender: FDA-Public Use
  Company Number: 1000027549

PATIENT
  Age: 52 Year
  Sex: Female

DRUGS (9)
  1. SAVELLA (MILNACIPRAN HYDROCHLORIDE) (12.5 MILLIGRAM, TABLETS) [Suspect]
     Indication: FIBROMYALGIA
     Dosage: 12.5 MG (12.5 MG, 1 IN 1 D)
     Dates: start: 201112, end: 201112
  2. SAVELLA (MILNACIPRAN HYDROCHLORIDE) (12.5 MILLIGRAM, TABLETS) [Suspect]
     Indication: MULTIPLE SCLEROSIS
     Dosage: 12.5 MG (12.5 MG, 1 IN 1 D)
     Dates: start: 201112, end: 201112
  3. SAVELLA (MILNACIPRAN HYDROCHLORIDE) (50 MILLIGRAM, TABLETS) [Suspect]
     Indication: FIBROMYALGIA
     Dosage: 25 GM BID (25 MG, 2 IN 1 D)
     Dates: start: 201201
  4. SAVELLA (MILNACIPRAN HYDROCHLORIDE) (50 MILLIGRAM, TABLETS) [Suspect]
     Indication: MULTIPLE SCLEROSIS
     Dosage: 25 GM BID (25 MG, 2 IN 1 D)
     Dates: start: 201201
  5. LYRICA (PREGABALIN) (PREGABALIN) [Concomitant]
  6. VICODIN (VICODIN) (VICODIN) [Concomitant]
  7. HORMONES (NOS) (HORMONES (NOS)) (HORMONES (NOS)) [Concomitant]
  8. PRISTIQ (DESVENLAFAXINE SUCCINATE) (DESVENLAFAXINE SUCCINATE) [Concomitant]
  9. RELPAX (ELETRIPTAN HYDROBROMIDE) (ELETRIPTAN HYDROBROMIDE) [Concomitant]

REACTIONS (3)
  - Inadequate analgesia [None]
  - Hyperhidrosis [None]
  - Drug ineffective [None]
